FAERS Safety Report 8357115-5 (Version None)
Quarter: 2012Q2

REPORT INFORMATION
  Report Type: 
  Country: None (occurrence: None)
  Receive Date: 20120514
  Receipt Date: 20120508
  Transmission Date: 20120825
  Serious: No
  Sender: FDA-Public Use
  Company Number: SE-ROCHE-1046358

PATIENT

DRUGS (1)
  1. ACTEMRA [Suspect]
     Indication: PRODUCT USED FOR UNKNOWN INDICATION

REACTIONS (4)
  - INFUSION RELATED REACTION [None]
  - NIGHT SWEATS [None]
  - BENIGN LUNG NEOPLASM [None]
  - ABDOMINAL MASS [None]
